FAERS Safety Report 8921743 (Version 1)
Quarter: 2012Q4

REPORT INFORMATION
  Report Type: Report from Study
  Country: US (occurrence: US)
  Receive Date: 20121121
  Receipt Date: 20121121
  Transmission Date: 20130627
  Serious: Yes (Other)
  Sender: FDA-Public Use
  Company Number: US-ABBOTT-12P-163-1008953-00

PATIENT
  Sex: Female
  Weight: 68.55 kg

DRUGS (3)
  1. HUMIRA [Suspect]
     Indication: RHEUMATOID ARTHRITIS
     Dates: start: 201102, end: 20120820
  2. METHOTREXATE [Concomitant]
     Indication: PRODUCT USED FOR UNKNOWN INDICATION
     Dosage: Unknown
     Dates: end: 201208
  3. METHOTREXATE [Concomitant]
     Dosage: Unknown
     Dates: start: 201210

REACTIONS (2)
  - Chondropathy [Recovering/Resolving]
  - Onychomycosis [Recovered/Resolved]
